FAERS Safety Report 11181031 (Version 2)
Quarter: 2015Q3

REPORT INFORMATION
  Report Type: Spontaneous
  Country: FR (occurrence: FR)
  Receive Date: 20150611
  Receipt Date: 20150730
  Transmission Date: 20151125
  Serious: Yes (Other)
  Sender: FDA-Public Use
  Company Number: FR-BAYER-2015-315241

PATIENT
  Age: 20 Year
  Sex: Female
  Weight: 95 kg

DRUGS (1)
  1. JAYDESS [Suspect]
     Active Substance: LEVONORGESTREL
     Indication: CONTRACEPTION
     Dosage: 14 MCG/24HR, CONT
     Route: 015
     Dates: start: 20150410, end: 20150530

REACTIONS (2)
  - Gynaecological chlamydia infection [None]
  - Abdominal pain [None]

NARRATIVE: CASE EVENT DATE: 20150410
